FAERS Safety Report 7580977-6 (Version None)
Quarter: 2011Q2

REPORT INFORMATION
  Report Type: 
  Country: None (occurrence: None)
  Receive Date: 20110629
  Receipt Date: 20110615
  Transmission Date: 20111010
  Serious: Yes (Other)
  Sender: FDA-Public Use
  Company Number: GB-WATSON-2011-09027

PATIENT
  Age: 41 Year
  Sex: Male

DRUGS (5)
  1. LITHIUM CHLORIDE [Concomitant]
     Indication: DEPRESSED MOOD
     Dosage: 1200 MG, UNK
     Route: 048
     Dates: start: 20070401
  2. SERTRALINE HYDROCHLORIDE [Suspect]
     Indication: DEPRESSED MOOD
     Dosage: 150 MG, UNK
     Route: 048
     Dates: start: 20070401
  3. MULTIVITAMIN                       /00097801/ [Concomitant]
     Indication: PRODUCT USED FOR UNKNOWN INDICATION
     Dosage: UNK
     Route: 065
     Dates: start: 20070401
  4. CLOZAPINE [Suspect]
     Indication: SCHIZOPHRENIA
     Dosage: 600 MG, UNK
     Route: 048
     Dates: start: 19950824
  5. SULPIRIDE [Suspect]
     Indication: AFFECTIVE DISORDER
     Dosage: 600 MG, UNK
     Route: 048
     Dates: start: 20070401

REACTIONS (4)
  - FALL [None]
  - HEADACHE [None]
  - VISUAL IMPAIRMENT [None]
  - LOSS OF CONSCIOUSNESS [None]
